FAERS Safety Report 5930535-1 (Version None)
Quarter: 2008Q4

REPORT INFORMATION
  Report Type: 
  Country: None (occurrence: None)
  Receive Date: 20081026
  Receipt Date: 20081021
  Transmission Date: 20090506
  Serious: Yes (Death, Other)
  Sender: FDA-Public Use
  Company Number: PHEH2008US09455

PATIENT
  Sex: Female

DRUGS (1)
  1. DIOVAN HCT [Suspect]
     Dosage: 160MGVAL/12.5MGHCT, UNK
     Dates: start: 20080612, end: 20080901

REACTIONS (2)
  - DEATH [None]
  - HYPOTENSION [None]
